FAERS Safety Report 8198431-X (Version None)
Quarter: 2012Q1

REPORT INFORMATION
  Report Type: 
  Country: None (occurrence: None)
  Receive Date: 20120309
  Receipt Date: 20120302
  Transmission Date: 20120608
  Serious: Yes (Hospitalization)
  Sender: FDA-Public Use
  Company Number: PHHY2012NL016970

PATIENT
  Sex: Female
  Weight: 88 kg

DRUGS (11)
  1. AMOXICILLIN [Suspect]
     Indication: BLOOD PRESSURE INCREASED
  2. AMOXICILLIN [Suspect]
     Indication: PNEUMONIA
  3. NOVORAPID [Concomitant]
     Dosage: 3 DF, UNK
  4. LIPITOR [Concomitant]
     Dosage: 20 MG, QD
  5. LEVEMIR [Concomitant]
  6. LERCANIDIPINE [Concomitant]
     Dosage: 20 MG, UNK
  7. RASILEZ [Concomitant]
     Dosage: 150 MG, UNK
  8. THYRAX DUOTAB [Concomitant]
     Dosage: 1 DF, QD
  9. AMOXICILLIN [Suspect]
     Indication: COUGH
     Dosage: 1 DF, TID
     Route: 048
     Dates: start: 20120105, end: 20120105
  10. INDAPAMIDE [Concomitant]
     Dosage: 2.5 MG, QD
  11. METFORMINE ^MERCK^ [Concomitant]
     Dosage: 500 MG, QD

REACTIONS (6)
  - FATIGUE [None]
  - APHASIA [None]
  - CONFUSIONAL STATE [None]
  - DISORIENTATION [None]
  - SPEECH DISORDER [None]
  - DIZZINESS [None]
